FAERS Safety Report 16557269 (Version 1)
Quarter: 2019Q3

REPORT INFORMATION
  Report Type: Spontaneous
  Country: US (occurrence: US)
  Receive Date: 20190711
  Receipt Date: 20190711
  Transmission Date: 20191004
  Serious: Yes (Hospitalization)
  Sender: FDA-Public Use
  Company Number: US-GW PHARMA-201907USGW2316

PATIENT

DRUGS (3)
  1. ONFI [Suspect]
     Active Substance: CLOBAZAM
     Indication: PRODUCT USED FOR UNKNOWN INDICATION
     Dosage: UNK
     Route: 065
  2. EPIDIOLEX [Suspect]
     Active Substance: CANNABIDIOL
     Indication: LENNOX-GASTAUT SYNDROME
     Dosage: 350 MILLIGRAM, BID
     Route: 048
     Dates: start: 20190227, end: 20190523
  3. EPIDIOLEX [Suspect]
     Active Substance: CANNABIDIOL
     Dosage: UNK, DOSE REDUCED
     Route: 048
     Dates: start: 201905

REACTIONS (3)
  - Device malfunction [Unknown]
  - Product use issue [Unknown]
  - Seizure [Unknown]

NARRATIVE: CASE EVENT DATE: 2019
